FAERS Safety Report 8726865 (Version 2)
Quarter: 2012Q4

REPORT INFORMATION
  Report Type: 
  Country: FR (occurrence: FR)
  Receive Date: 20120816
  Receipt Date: 20120910
  Transmission Date: 20130627
  Serious: Yes (Other)
  Sender: FDA-Public Use
  Company Number: FR-ROCHE-1098467

PATIENT
  Age: 58 None
  Sex: Female
  Weight: 43 kg

DRUGS (9)
  1. RIVOTRIL [Suspect]
     Indication: CRANIAL NERVE DISORDER
     Route: 048
     Dates: start: 2003, end: 20120306
  2. RIVOTRIL [Suspect]
     Indication: INSOMNIA
  3. DETENSIEL [Concomitant]
     Indication: HYPERTENSION
     Dosage: product name reported as DETENSIEL 10
     Route: 065
  4. STAGID [Concomitant]
     Indication: TYPE 2 DIABETES MELLITUS
     Dosage: product name reported as STAGID 700
     Route: 065
  5. ASPEGIC [Concomitant]
     Indication: CORONARY ARTERY BYPASS
  6. COZAAR [Concomitant]
  7. XYZALL [Concomitant]
  8. STABLON [Concomitant]
     Dosage: product name reported as STABLON 12.5
     Route: 065
  9. OPTRUMA [Concomitant]

REACTIONS (9)
  - Withdrawal syndrome [Not Recovered/Not Resolved]
  - Hallucination, visual [Not Recovered/Not Resolved]
  - Crying [Not Recovered/Not Resolved]
  - Alopecia [Not Recovered/Not Resolved]
  - Weight decreased [Not Recovered/Not Resolved]
  - Muscle fatigue [Not Recovered/Not Resolved]
  - Visual impairment [Recovered/Resolved]
  - Insomnia [Unknown]
  - Gait disturbance [None]
